FAERS Safety Report 11809782 (Version 1)
Quarter: 2015Q4

REPORT INFORMATION
  Report Type: Spontaneous
  Country: US (occurrence: US)
  Receive Date: 20151208
  Receipt Date: 20151208
  Transmission Date: 20160305
  Serious: Yes (Life-Threatening, Other)
  Sender: FDA-Public Use
  Company Number: US-PFIZER INC-2015409448

PATIENT
  Age: 27 Year
  Sex: Female

DRUGS (1)
  1. SUTENT [Suspect]
     Active Substance: SUNITINIB MALATE
     Indication: RENAL CANCER STAGE II
     Dosage: UNK

REACTIONS (4)
  - Apparent death [Unknown]
  - Renal cancer stage IV [Unknown]
  - Disease progression [Unknown]
  - Abasia [Unknown]
